FAERS Safety Report 9599625 (Version 2)
Quarter: 2014Q1

REPORT INFORMATION
  Report Type: Spontaneous
  Country: US (occurrence: US)
  Receive Date: 20131004
  Receipt Date: 20140307
  Transmission Date: 20141002
  Serious: No
  Sender: FDA-Public Use
  Company Number: US-AMGEN-USASP2013030788

PATIENT
  Age: 44 Year
  Sex: Female
  Weight: 49.43 kg

DRUGS (5)
  1. ENBREL [Suspect]
     Indication: RHEUMATOID ARTHRITIS
     Dosage: 50 MG, QWK
     Route: 065
     Dates: start: 20130408
  2. ZOVIA 1/50-28 [Concomitant]
     Dosage: UNK
  3. ROBINUL [Concomitant]
     Dosage: 1 MG, UNK
  4. LYRICA [Concomitant]
     Dosage: 25 MG, UNK
  5. PLAQUENIL                          /00072603/ [Concomitant]
     Dosage: 200 MG, UNK

REACTIONS (2)
  - Injection site bruising [Not Recovered/Not Resolved]
  - Injection site pain [Not Recovered/Not Resolved]
